FAERS Safety Report 6331425-5 (Version None)
Quarter: 2009Q3

REPORT INFORMATION
  Report Type: 
  Country: None (occurrence: None)
  Receive Date: 20090827
  Receipt Date: 20090821
  Transmission Date: 20100115
  Serious: Yes (Other)
  Sender: FDA-Public Use
  Company Number: US-ABBOTT-08P-163-0460009-00

PATIENT
  Sex: Female
  Weight: 111.68 kg

DRUGS (12)
  1. HUMIRA [Suspect]
     Indication: PSORIATIC ARTHROPATHY
     Route: 058
     Dates: start: 20070601
  2. LISINOPRIL [Concomitant]
     Indication: BLOOD PRESSURE
     Route: 048
     Dates: start: 19990101
  3. METOPROLOL [Concomitant]
     Indication: CARDIAC DISORDER
     Route: 048
     Dates: start: 19990101
  4. PEPCID [Concomitant]
     Indication: DYSPEPSIA
     Route: 048
     Dates: start: 19980101
  5. SULFATHIAZINE [Concomitant]
     Indication: PSORIATIC ARTHROPATHY
     Route: 048
     Dates: start: 20080501
  6. SULFATHIAZINE [Concomitant]
     Route: 048
     Dates: start: 19880101, end: 20080501
  7. ANTARA (MICRONIZED) [Concomitant]
     Indication: DRUG USE FOR UNKNOWN INDICATION
     Route: 048
     Dates: start: 19990101
  8. CRESTOR [Concomitant]
     Indication: BLOOD CHOLESTEROL
     Route: 048
     Dates: start: 20080501
  9. PLAVIX [Concomitant]
     Indication: DRUG USE FOR UNKNOWN INDICATION
     Route: 048
     Dates: start: 20080501
  10. ASPIRIN [Concomitant]
     Indication: DRUG USE FOR UNKNOWN INDICATION
     Route: 048
     Dates: start: 20080501
  11. ASPIRIN [Concomitant]
     Route: 048
     Dates: end: 20080501
  12. TYLENOL (CAPLET) [Concomitant]
     Indication: PSORIATIC ARTHROPATHY
     Route: 048
     Dates: start: 20080512

REACTIONS (7)
  - ANGINA PECTORIS [None]
  - CORONARY ARTERY DISEASE [None]
  - CORONARY ARTERY OCCLUSION [None]
  - DRUG DELIVERY SYSTEM MALFUNCTION [None]
  - ILIAC ARTERY OCCLUSION [None]
  - INCORRECT DOSE ADMINISTERED [None]
  - PERIPHERAL VASCULAR DISORDER [None]
